FAERS Safety Report 19082618 (Version 1)
Quarter: 2021Q1

REPORT INFORMATION
  Report Type: Spontaneous
  Country: US (occurrence: US)
  Receive Date: 20210331
  Receipt Date: 20210331
  Transmission Date: 20210420
  Serious: Yes (Death)
  Sender: FDA-Public Use
  Company Number: None

PATIENT
  Age: 77 Year
  Sex: Male

DRUGS (1)
  1. REVLIMID [Suspect]
     Active Substance: LENALIDOMIDE
     Indication: PLASMA CELL MYELOMA
     Route: 048
     Dates: start: 20201029, end: 20210321

REACTIONS (8)
  - Atrial flutter [None]
  - Atrial fibrillation [None]
  - Hypoglycaemia [None]
  - Localised infection [None]
  - Acute kidney injury [None]
  - Mental status changes [None]
  - Bacteraemia [None]
  - Osteomyelitis [None]

NARRATIVE: CASE EVENT DATE: 20210321
